FAERS Safety Report 11170255 (Version 1)
Quarter: 2015Q2

REPORT INFORMATION
  Report Type: Spontaneous
  Country: US (occurrence: US)
  Receive Date: 20150608
  Receipt Date: 20150608
  Transmission Date: 20150821
  Serious: No
  Sender: FDA-Public Use
  Company Number: US-009507513-1505USA015479

PATIENT
  Sex: Female

DRUGS (3)
  1. EXFORGE [Suspect]
     Active Substance: AMLODIPINE BESYLATE\VALSARTAN
     Dosage: UNK
  2. AMLODIPINE [Suspect]
     Active Substance: AMLODIPINE BESYLATE
     Dosage: UNK
  3. COZAAR [Suspect]
     Active Substance: LOSARTAN POTASSIUM
     Dosage: UNK
     Route: 048

REACTIONS (7)
  - Pruritus generalised [Unknown]
  - Head discomfort [Unknown]
  - Feeling abnormal [Unknown]
  - Sleep disorder [Unknown]
  - Palpitations [Unknown]
  - Dizziness [Unknown]
  - Posture abnormal [Unknown]
